FAERS Safety Report 9686670 (Version 3)
Quarter: 2014Q3

REPORT INFORMATION
  Report Type: Spontaneous
  Country: US (occurrence: US)
  Receive Date: 20131113
  Receipt Date: 20140703
  Transmission Date: 20150326
  Serious: Yes (Hospitalization, Disabling, Other)
  Sender: FDA-Public Use
  Company Number: US-009507513-1201USA00798

PATIENT
  Sex: Female

DRUGS (7)
  1. PYRIDOXINE [Concomitant]
     Active Substance: PYRIDOXINE
     Dosage: 100 MG, QD
     Route: 048
     Dates: start: 1991
  2. MAGNESIUM (UNSPECIFIED) [Concomitant]
     Active Substance: MAGNESIUM
     Dosage: 250-500 MG, QD
     Route: 048
     Dates: start: 1991
  3. VITAMINS (UNSPECIFIED) [Concomitant]
     Active Substance: VITAMINS
     Dosage: 500 MG, QD
     Route: 048
     Dates: start: 1981
  4. VOLTAREN [Concomitant]
     Active Substance: DICLOFENAC SODIUM
     Indication: ARTHRITIS
     Dosage: 75 MG, UNK
     Dates: start: 1990
  5. ALENDRONATE SODIUM. [Suspect]
     Active Substance: ALENDRONATE SODIUM
     Dosage: 70 MG, UNK
  6. FOSAMAX [Suspect]
     Active Substance: ALENDRONATE SODIUM
     Indication: OSTEOPOROSIS
     Dosage: 70 MG, UNK
     Route: 048
     Dates: start: 200401, end: 201011
  7. CALCIUM (UNSPECIFIED) [Concomitant]
     Active Substance: CALCIUM
     Dosage: 1250 MG, QD
     Route: 048
     Dates: start: 1991

REACTIONS (20)
  - Inappropriate schedule of drug administration [Unknown]
  - Femur fracture [Unknown]
  - Endometrial hyperplasia [Unknown]
  - Tension headache [Unknown]
  - Intramedullary rod insertion [Unknown]
  - Carcinoma in situ of skin [Unknown]
  - Migraine [Unknown]
  - Radiation skin injury [Not Recovered/Not Resolved]
  - Actinic keratosis [Unknown]
  - Oedema [Unknown]
  - Meralgia paraesthetica [Unknown]
  - Squamous cell carcinoma [Unknown]
  - Large intestine polyp [Unknown]
  - Diverticulum [Unknown]
  - Hot flush [Unknown]
  - Bowen^s disease [Unknown]
  - Polypectomy [Unknown]
  - Femur fracture [Unknown]
  - Psoriasis [Unknown]
  - Spinal osteoarthritis [Unknown]

NARRATIVE: CASE EVENT DATE: 2004
